FAERS Safety Report 8549732-4 (Version None)
Quarter: 2012Q3

REPORT INFORMATION
  Report Type: 
  Country: None (occurrence: None)
  Receive Date: 20120730
  Receipt Date: 20120529
  Transmission Date: 20120928
  Serious: No
  Sender: FDA-Public Use
  Company Number: US-009507513-1207USA006510

PATIENT

DRUGS (1)
  1. ZEGERID OTC [Suspect]
     Indication: PRODUCT USED FOR UNKNOWN INDICATION
     Dosage: UNK, UNKNOWN
     Route: 048

REACTIONS (8)
  - PARAESTHESIA [None]
  - ARTHRALGIA [None]
  - PRURITUS [None]
  - PAIN IN EXTREMITY [None]
  - HYPOAESTHESIA [None]
  - SWELLING [None]
  - INSOMNIA [None]
  - HEADACHE [None]
